FAERS Safety Report 11269593 (Version 1)
Quarter: 2015Q3

REPORT INFORMATION
  Report Type: Spontaneous
  Country: US (occurrence: None)
  Receive Date: 20150713
  Receipt Date: 20150713
  Transmission Date: 20151125
  Serious: Yes (Hospitalization)
  Sender: FDA-Public Use
  Company Number: US-2015CRT000442

PATIENT
  Age: 60 Year
  Sex: Female
  Weight: 79.4 kg

DRUGS (10)
  1. LANTUS [Concomitant]
     Active Substance: INSULIN GLARGINE
  2. JANUMET [Concomitant]
     Active Substance: METFORMIN HYDROCHLORIDE\SITAGLIPTIN PHOSPHATE
  3. KORLYM [Suspect]
     Active Substance: MIFEPRISTONE
     Indication: CUSHING^S SYNDROME
     Dosage: 300 MG DAILY ROTATING WITH 600 MG DAILY QOD
     Route: 048
     Dates: start: 201501, end: 2015
  4. FLUOXETINE (FLUOXETINE) [Suspect]
     Active Substance: FLUOXETINE HYDROCHLORIDE
     Indication: PRODUCT USED FOR UNKNOWN INDICATION
  5. SIMVASTATIN. [Concomitant]
     Active Substance: SIMVASTATIN
  6. DULOXETINE (DULOXETINE) [Concomitant]
     Active Substance: DULOXETINE
  7. POTASSIUM [Concomitant]
     Active Substance: POTASSIUM
  8. NOVOLOG [Concomitant]
     Active Substance: INSULIN ASPART
  9. VALSARTAN. [Concomitant]
     Active Substance: VALSARTAN
  10. LYRICA [Concomitant]
     Active Substance: PREGABALIN

REACTIONS (7)
  - Lethargy [None]
  - Fatigue [None]
  - Renal failure [None]
  - Nausea [None]
  - Back pain [None]
  - Malaise [None]
  - Vomiting [None]

NARRATIVE: CASE EVENT DATE: 201503
